FAERS Safety Report 14425898 (Version 1)
Quarter: 2018Q1

REPORT INFORMATION
  Report Type: Spontaneous
  Country: RU (occurrence: RU)
  Receive Date: 20180123
  Receipt Date: 20180123
  Transmission Date: 20180509
  Serious: Yes (Other)
  Sender: FDA-Public Use
  Company Number: RU-B. BRAUN MEDICAL INC.-2040629

PATIENT
  Age: 63 Year
  Sex: Male
  Weight: 130 kg

DRUGS (12)
  1. CEFOPERAZONE [Concomitant]
     Active Substance: CEFOPERAZONE
     Route: 042
  2. 0.9% SODIUM CHLORIDE INJECTION USP 0264-1800-31 0264-1800-32 [Suspect]
     Active Substance: SODIUM CHLORIDE
     Indication: PRODUCT USED FOR UNKNOWN INDICATION
     Dates: start: 20171119, end: 20171214
  3. AMIODARONE HYDROCHLORIDE. [Concomitant]
     Active Substance: AMIODARONE HYDROCHLORIDE
     Route: 042
  4. OMEPRAZOLE. [Concomitant]
     Active Substance: OMEPRAZOLE
     Route: 042
  5. DEXTROSE. [Concomitant]
     Active Substance: DEXTROSE
     Route: 042
  6. MAGNESIUM SULFATE. [Concomitant]
     Active Substance: MAGNESIUM SULFATE
     Route: 042
  7. PANCREATIN [Concomitant]
     Active Substance: PANCRELIPASE
     Route: 048
  8. POTASSIUM AND MAGNESIUM ASPARAGINATE [Concomitant]
     Route: 042
  9. PARNAPARIN SODIUM [Concomitant]
     Active Substance: PARNAPARIN SODIUM
     Route: 048
  10. ETILMETILGIDROKSIPIRIDINA SUCCINATE [Concomitant]
     Route: 042
  11. ACETYLSALICYLIC ACID AND MAGNESIUM HYDROXIDE [Concomitant]
  12. POTASSIUM CHLORIDE. [Concomitant]
     Active Substance: POTASSIUM CHLORIDE
     Route: 042

REACTIONS (2)
  - Hyperthermia [None]
  - Hypotension [None]
